FAERS Safety Report 9954987 (Version 1)
Quarter: 2014Q1

REPORT INFORMATION
  Report Type: Report from Study
  Country: US (occurrence: US)
  Receive Date: 20140304
  Receipt Date: 20140304
  Transmission Date: 20141002
  Serious: No
  Sender: FDA-Public Use
  Company Number: US-ABBVIE-13P-163-1080129-00

PATIENT
  Age: 52 Year
  Sex: Female

DRUGS (13)
  1. HUMIRA [Suspect]
     Indication: RHEUMATOID ARTHRITIS
     Dates: start: 20130330
  2. CELEXA [Concomitant]
     Indication: DEPRESSION
  3. METFORMIN [Concomitant]
     Indication: DIABETES MELLITUS
  4. IRON [Concomitant]
     Indication: BLOOD IRON DECREASED
  5. ASPIRIN [Concomitant]
     Indication: PRODUCT USED FOR UNKNOWN INDICATION
  6. FIBER SUPPLEMENT [Concomitant]
     Indication: PRODUCT USED FOR UNKNOWN INDICATION
  7. STOOL SOFTENER [Concomitant]
     Indication: PRODUCT USED FOR UNKNOWN INDICATION
  8. ZOCOR [Concomitant]
     Indication: BLOOD CHOLESTEROL INCREASED
  9. METHOTREXATE [Concomitant]
     Indication: RHEUMATOID ARTHRITIS
  10. FOLIC ACID [Concomitant]
     Indication: RHEUMATOID ARTHRITIS
  11. VITAMIN D [Concomitant]
     Indication: VITAMIN D DEFICIENCY
  12. LUMIGAN [Concomitant]
     Indication: INTRAOCULAR PRESSURE INCREASED
     Dosage: EYE DROPS
  13. MICARDIS [Concomitant]
     Indication: HYPERTENSION

REACTIONS (7)
  - Dyspepsia [Recovered/Resolved]
  - Vomiting [Recovered/Resolved]
  - Dyspepsia [Not Recovered/Not Resolved]
  - Nausea [Not Recovered/Not Resolved]
  - Vomiting [Not Recovered/Not Resolved]
  - Dyspepsia [Not Recovered/Not Resolved]
  - Gastrooesophageal reflux disease [Not Recovered/Not Resolved]
